FAERS Safety Report 20246449 (Version 2)
Quarter: 2021Q4

REPORT INFORMATION
  Report Type: Report from Study
  Country: KR (occurrence: None)
  Receive Date: 20211229
  Receipt Date: 20211230
  Transmission Date: 20220303
  Serious: Yes (Death)
  Sender: FDA-Public Use
  Company Number: KR-Eisai Medical Research-EC-2021-105857

PATIENT
  Age: 71 Year
  Sex: Female

DRUGS (2)
  1. LENVIMA [Suspect]
     Active Substance: LENVATINIB
     Indication: Hepatocellular carcinoma
     Dosage: UNKNOWN FREQUENCY
     Route: 048
     Dates: start: 20201124, end: 20210118
  2. ENTECABELL [Concomitant]
     Indication: Chronic hepatitis B
     Dosage: DOSE: 1 TAB
     Route: 048
     Dates: start: 20201116, end: 20210118

REACTIONS (1)
  - Haemorrhage [Fatal]

NARRATIVE: CASE EVENT DATE: 20210118
